FAERS Safety Report 8503024-8 (Version None)
Quarter: 2012Q3

REPORT INFORMATION
  Report Type: 
  Country: None (occurrence: None)
  Receive Date: 20120711
  Receipt Date: 20120629
  Transmission Date: 20120928
  Serious: No
  Sender: FDA-Public Use
  Company Number: US-ASTRAZENECA-2010SE59084

PATIENT
  Age: 60 Year
  Sex: Female

DRUGS (2)
  1. NEXIUM [Suspect]
     Route: 048
  2. PREDNISONE [Concomitant]

REACTIONS (5)
  - INFECTIOUS MONONUCLEOSIS [None]
  - NARCOLEPSY [None]
  - LIVER DISORDER [None]
  - IMPAIRED DRIVING ABILITY [None]
  - INFLUENZA [None]
